FAERS Safety Report 9302533 (Version 1)
Quarter: 2013Q2

REPORT INFORMATION
  Report Type: Spontaneous
  Country: US (occurrence: US)
  Receive Date: 20130522
  Receipt Date: 20130522
  Transmission Date: 20140414
  Serious: No
  Sender: FDA-Public Use
  Company Number: US-009507513-1305USA005149

PATIENT
  Age: 63 Year
  Sex: Male

DRUGS (4)
  1. COZAAR [Suspect]
     Indication: BLOOD PRESSURE ABNORMAL
     Dosage: 50 MG, QD
     Route: 048
     Dates: start: 20130426, end: 20130427
  2. MECLIZINE [Suspect]
  3. ELAVIL (MADE BY MERCK, MARKETED BY ZENECA) [Concomitant]
     Route: 048
  4. DONNATAL [Concomitant]

REACTIONS (9)
  - Irritability [Recovered/Resolved]
  - Dry throat [Recovered/Resolved]
  - Oropharyngeal pain [Recovered/Resolved]
  - Sinusitis [Recovering/Resolving]
  - Insomnia [Recovered/Resolved]
  - Throat irritation [Recovered/Resolved]
  - Feeling abnormal [Unknown]
  - Fatigue [Unknown]
  - Hypersensitivity [Unknown]
